FAERS Safety Report 5645502-5 (Version None)
Quarter: 2008Q1

REPORT INFORMATION
  Report Type: 
  Country: None (occurrence: None)
  Receive Date: 20080229
  Receipt Date: 20070514
  Transmission Date: 20080703
  Serious: No
  Sender: FDA-Public Use
  Company Number: US-BRISTOL-MYERS SQUIBB COMPANY-13779392

PATIENT
  Age: 61 Year
  Sex: Male

DRUGS (15)
  1. TAXOL [Suspect]
     Indication: NEOPLASM MALIGNANT
     Route: 042
     Dates: start: 20070116, end: 20070116
  2. TAXOTERE [Suspect]
     Indication: NEOPLASM MALIGNANT
     Route: 042
     Dates: start: 20070201, end: 20070201
  3. FLUOROURACIL [Suspect]
     Indication: NEOPLASM MALIGNANT
     Route: 042
     Dates: start: 20070201, end: 20070201
  4. ANZEMET [Concomitant]
     Dates: start: 20070116
  5. DECADRON [Concomitant]
     Dates: start: 20070116
  6. BENADRYL [Concomitant]
     Dates: start: 20070116
  7. ROCEPHIN [Concomitant]
     Dates: start: 20070116
  8. ZANTAC 150 [Concomitant]
     Dates: start: 20070116
  9. ZOFRAN [Concomitant]
     Dates: start: 20070201
  10. CELEBREX [Concomitant]
  11. MULTI-VITAMIN [Concomitant]
  12. CITRUCEL [Concomitant]
  13. ASPIRIN [Concomitant]
  14. BISOPROLOL FUMARATE [Concomitant]
  15. FUROSEMIDE [Concomitant]

REACTIONS (5)
  - CHEST DISCOMFORT [None]
  - EYE PRURITUS [None]
  - LACRIMATION INCREASED [None]
  - MUSCULOSKELETAL STIFFNESS [None]
  - SNEEZING [None]
